FAERS Safety Report 10204573 (Version 1)
Quarter: 2014Q2

REPORT INFORMATION
  Report Type: Spontaneous
  Country: US (occurrence: US)
  Receive Date: 20140529
  Receipt Date: 20140529
  Transmission Date: 20141212
  Serious: No
  Sender: FDA-Public Use
  Company Number: US-MYLANLABS-2013S1007128

PATIENT
  Age: 71 Year
  Sex: Female

DRUGS (1)
  1. ALBUTEROL SULFATE INHALATION SOLUTION [Suspect]
     Indication: ASTHMA
     Dosage: 3-4 TIMES/DAY
     Route: 055
     Dates: start: 2010

REACTIONS (2)
  - Drug effect decreased [Not Recovered/Not Resolved]
  - Asthma [Not Recovered/Not Resolved]
